FAERS Safety Report 6972189-1 (Version None)
Quarter: 2010Q3

REPORT INFORMATION
  Report Type: 
  Country: None (occurrence: None)
  Receive Date: 20100909
  Receipt Date: 20100830
  Transmission Date: 20110219
  Serious: No
  Sender: FDA-Public Use
  Company Number: US-BIOGENIDEC-2010BI030078

PATIENT
  Age: 52 Year
  Sex: Female

DRUGS (1)
  1. AVONEX [Suspect]
     Indication: MULTIPLE SCLEROSIS
     Route: 030
     Dates: start: 20091127

REACTIONS (5)
  - FALL [None]
  - GAIT DISTURBANCE [None]
  - HEMIPARESIS [None]
  - INJECTION SITE PAIN [None]
  - MUSCULOSKELETAL DISORDER [None]
